FAERS Safety Report 24967202 (Version 2)
Quarter: 2025Q1

REPORT INFORMATION
  Report Type: Spontaneous
  Country: JP (occurrence: JP)
  Receive Date: 20250213
  Receipt Date: 20250306
  Transmission Date: 20250409
  Serious: Yes (Hospitalization, Other)
  Sender: TAKEDA
  Company Number: JP-SA-2025SA038277

PATIENT
  Age: 20 Year
  Sex: Male

DRUGS (4)
  1. ELAPRASE [Suspect]
     Active Substance: IDURSULFASE
     Indication: Mucopolysaccharidosis II
  2. ELAPRASE [Suspect]
     Active Substance: IDURSULFASE
  3. ELAPRASE [Suspect]
     Active Substance: IDURSULFASE
  4. ELAPRASE [Suspect]
     Active Substance: IDURSULFASE

REACTIONS (3)
  - Volvulus [Recovered/Resolved]
  - Infusion related reaction [Unknown]
  - Rash [Unknown]

NARRATIVE: CASE EVENT DATE: 20240101
